FAERS Safety Report 9714047 (Version 4)
Quarter: 2014Q1

REPORT INFORMATION
  Report Type: Spontaneous
  Country: US (occurrence: None)
  Receive Date: 20131122
  Receipt Date: 20140123
  Transmission Date: 20141002
  Serious: Yes (Other)
  Sender: FDA-Public Use
  Company Number: US-MDCO-13-00036

PATIENT
  Age: 45 Year
  Sex: Male

DRUGS (8)
  1. ANGIOMAX [Suspect]
     Indication: PERCUTANEOUS CORONARY INTERVENTION
     Route: 040
     Dates: start: 20130511
  2. PLAVIX [Concomitant]
  3. INTEGRILIN [Concomitant]
  4. EFFIENT [Concomitant]
  5. LIPITOR [Concomitant]
  6. ASPIRIN [Concomitant]
  7. NORVASC [Concomitant]
  8. COREG [Concomitant]

REACTIONS (3)
  - Device occlusion [None]
  - Post procedural complication [None]
  - Product quality issue [None]
